APPROVED DRUG PRODUCT: MORPHINE SULFATE
Active Ingredient: MORPHINE SULFATE
Strength: 1MG/ML
Dosage Form/Route: INJECTABLE;INJECTION
Application: A073510 | Product #001 | TE Code: AP
Applicant: HOSPIRA INC
Approved: Sep 30, 1992 | RLD: No | RS: No | Type: RX